FAERS Safety Report 4603159-6 (Version None)
Quarter: 2005Q1

REPORT INFORMATION
  Report Type: 
  Country: None (occurrence: None)
  Receive Date: 20050308
  Receipt Date: 20050222
  Transmission Date: 20050727
  Serious: Yes (Hospitalization)
  Sender: FDA-Public Use
  Company Number: IBF20050007

PATIENT
  Age: 15 Year
  Sex: Female

DRUGS (3)
  1. IBUPROFEN [Suspect]
     Indication: PYREXIA
     Dosage: 5 MG/KG PO
     Route: 048
     Dates: start: 20040101, end: 20040101
  2. PARACETAMOL 15 MG/KG [Suspect]
     Indication: PYREXIA
     Dosage: 15 MG/KG PO
     Route: 048
     Dates: start: 20040101, end: 20040101
  3. CEFUROXIME [Concomitant]

REACTIONS (3)
  - DRUG EFFECT INCREASED [None]
  - HYPOTHERMIA [None]
  - SEPSIS [None]
